FAERS Safety Report 7561132-2 (Version None)
Quarter: 2011Q2

REPORT INFORMATION
  Report Type: 
  Country: None (occurrence: None)
  Receive Date: 20110621
  Receipt Date: 20110616
  Transmission Date: 20111010
  Serious: Yes (Hospitalization, Other)
  Sender: FDA-Public Use
  Company Number: US-ELI_LILLY_AND_COMPANY-US201002003452

PATIENT
  Sex: Female
  Weight: 97.506 kg

DRUGS (5)
  1. METFORMIN HCL [Concomitant]
     Indication: DIABETES MELLITUS
     Dosage: UNK
     Dates: start: 20060601, end: 20090121
  2. BYETTA [Suspect]
     Dosage: UNK, UNKNOWN
     Route: 065
     Dates: start: 20070121, end: 20081201
  3. HYDROCHLOROTHIAZIDE [Concomitant]
     Indication: HYPERTENSION
     Dosage: UNK
     Dates: start: 19970101
  4. LISINOPRIL [Concomitant]
     Dosage: UNK
     Dates: start: 19970101
  5. NORVASC [Concomitant]
     Dosage: UNK
     Dates: start: 19970101

REACTIONS (1)
  - PANCREATITIS [None]
